FAERS Safety Report 8972266 (Version 1)
Quarter: 2012Q4

REPORT INFORMATION
  Report Type: 
  Country: US (occurrence: US)
  Receive Date: 20121219
  Receipt Date: 20121219
  Transmission Date: 20130627
  Serious: Yes (Hospitalization, Other)
  Sender: FDA-Public Use
  Company Number: US-EISAI INC-E3810-06130-SPO-US

PATIENT
  Sex: Male
  Weight: 116 kg

DRUGS (4)
  1. ACIPHEX (RABEPRAZOLE) [Suspect]
     Indication: ULCER NOS
     Route: 048
     Dates: start: 2012
  2. ACIPHEX (RABEPRAZOLE) [Suspect]
     Route: 048
     Dates: end: 2012
  3. ENDECRIN [Concomitant]
     Indication: DIURETIC THERAPY
     Route: 048
     Dates: end: 201211
  4. ENDECRIN [Concomitant]
     Route: 048
     Dates: start: 201211

REACTIONS (11)
  - Knee operation [Not Recovered/Not Resolved]
  - Fluid retention [Not Recovered/Not Resolved]
  - Gastric ulcer [Not Recovered/Not Resolved]
  - Gastritis [Not Recovered/Not Resolved]
  - Gastric dilatation [Not Recovered/Not Resolved]
  - Blister [Not Recovered/Not Resolved]
  - Weight decreased [Not Recovered/Not Resolved]
  - Blood creatine increased [Not Recovered/Not Resolved]
  - Dyspnoea [Not Recovered/Not Resolved]
  - Rash [Not Recovered/Not Resolved]
  - Oedema peripheral [Not Recovered/Not Resolved]
